FAERS Safety Report 6426714-X (Version None)
Quarter: 2009Q4

REPORT INFORMATION
  Report Type: 
  Country: None (occurrence: None)
  Receive Date: 20091104
  Receipt Date: 20091029
  Transmission Date: 20100525
  Serious: Yes (Hospitalization, Other)
  Sender: FDA-Public Use
  Company Number: GB-ELI_LILLY_AND_COMPANY-GB200909002793

PATIENT
  Sex: Female
  Weight: 157 kg

DRUGS (10)
  1. BYETTA [Suspect]
     Indication: OVERWEIGHT
  2. BYETTA [Suspect]
     Dosage: 5 UG, UNKNOWN
     Route: 058
     Dates: start: 20090901, end: 20090901
  3. METFORMIN [Concomitant]
     Route: 048
  4. GLICLAZIDE [Concomitant]
     Route: 048
  5. SIMVASTATIN [Concomitant]
  6. ALBUTEROL [Concomitant]
  7. VENLAFAXINE [Concomitant]
     Route: 048
  8. LANSOPRAZOLE [Concomitant]
     Route: 048
  9. MONTELUKAST [Concomitant]
  10. MEBEVERINE [Concomitant]
     Dosage: UNK, UNKNOWN

REACTIONS (5)
  - HOSPITALISATION [None]
  - OFF LABEL USE [None]
  - STRIDOR [None]
  - URTICARIA [None]
  - WHEEZING [None]
